FAERS Safety Report 13383868 (Version 1)
Quarter: 2017Q1

REPORT INFORMATION
  Report Type: Spontaneous
  Country: CH (occurrence: CH)
  Receive Date: 20170329
  Receipt Date: 20170329
  Transmission Date: 20170429
  Serious: Yes (Hospitalization)
  Sender: FDA-Public Use
  Company Number: CH-009507513-1703CHE010709

PATIENT
  Age: 85 Year
  Sex: Male

DRUGS (14)
  1. MARCOUMAR [Concomitant]
     Active Substance: PHENPROCOUMON
     Dosage: 0.025 MG, QD
  2. KALCIPOS D3 [Concomitant]
     Dosage: UNK
  3. MADOPAR [Suspect]
     Active Substance: BENSERAZIDE HYDROCHLORIDE\LEVODOPA
     Indication: PARKINSON^S DISEASE
     Dosage: LONG-STANDING ? 25NOV2016: 1062.5MG PER DAY X 26NOV2016 ? 28NOV2016:
  4. REMERON [Suspect]
     Active Substance: MIRTAZAPINE
  5. CLOPIN [Suspect]
     Active Substance: CLOPIDOGREL BISULFATE
     Dosage: 02DEC2016 ? 04DEC2016: 12MG PER DAY X05DEC2016: 25MG PER DAY
     Dates: start: 20161202, end: 20161205
  6. STALEVO [Suspect]
     Active Substance: CARBIDOPA\ENTACAPONE\LEVODOPA
     Dosage: 1 DF = 150MG LEVODOPA/37.5MG CARBIDOPA /200MG ENTACAPONE
     Dates: start: 20161126
  7. PANTOZOL [Concomitant]
     Active Substance: PANTOPRAZOLE SODIUM
  8. FRAGMIN [Concomitant]
     Active Substance: DALTEPARIN SODIUM
     Dosage: 0.4ML = 10,000 IU PER DAY
     Dates: start: 20161202
  9. DUODART [Concomitant]
     Active Substance: DUTASTERIDE\TAMSULOSIN
     Dosage: LONG-STANDING THERAPY X0.5MG DUTASTERIDE/ 0.4G TAMSULOSIN PER DAY
  10. PARAGOL N [Concomitant]
     Dosage: UNK
  11. REQUIP [Suspect]
     Active Substance: ROPINIROLE HYDROCHLORIDE
     Dosage: 2 MG, LONG-STANDING
  12. POLYETHYLENE GLYCOL [Concomitant]
     Active Substance: POLYETHYLENE GLYCOLS
     Dosage: UNK
  13. DAFALGAN [Concomitant]
     Active Substance: ACETAMINOPHEN
     Dosage: 500MG PER DAY PRN
     Dates: start: 20161202
  14. DUROGESIC [Concomitant]
     Active Substance: FENTANYL
     Dosage: 12 MICROGRAM, QH
     Route: 062

REACTIONS (2)
  - Coma scale abnormal [Recovered/Resolved]
  - Somnolence [Recovered/Resolved]

NARRATIVE: CASE EVENT DATE: 20161206
